FAERS Safety Report 7927155-6 (Version None)
Quarter: 2011Q4

REPORT INFORMATION
  Report Type: 
  Country: None (occurrence: None)
  Receive Date: 20111118
  Receipt Date: 20111115
  Transmission Date: 20120403
  Serious: Yes (Other)
  Sender: FDA-Public Use
  Company Number: US-JNJFOC-20110712345

PATIENT
  Age: 31 Year
  Sex: Male

DRUGS (1)
  1. ARESTIN [Suspect]
     Indication: PERIODONTAL DISEASE
     Route: 048
     Dates: start: 20110520, end: 20110520

REACTIONS (13)
  - GAIT DISTURBANCE [None]
  - FEELING ABNORMAL [None]
  - SWELLING FACE [None]
  - VISION BLURRED [None]
  - TENDON RUPTURE [None]
  - ARTHRALGIA [None]
  - SUNBURN [None]
  - AORTIC DILATATION [None]
  - MALAISE [None]
  - JOINT SWELLING [None]
  - INSOMNIA [None]
  - PERICARDITIS [None]
  - CHEST PAIN [None]
